FAERS Safety Report 18314830 (Version 1)
Quarter: 2020Q3

REPORT INFORMATION
  Report Type: Spontaneous
  Country: US (occurrence: US)
  Receive Date: 20200925
  Receipt Date: 20200925
  Transmission Date: 20201103
  Serious: Yes (Other)
  Sender: FDA-Public Use
  Company Number: US-ALEXION-A202013975

PATIENT
  Age: 2 Month
  Sex: Male
  Weight: 5.74 kg

DRUGS (6)
  1. SOLIRIS [Suspect]
     Active Substance: ECULIZUMAB
     Dosage: UNK, Q3W
     Route: 065
  2. SOLIRIS [Suspect]
     Active Substance: ECULIZUMAB
     Indication: ATYPICAL HAEMOLYTIC URAEMIC SYNDROME
     Dosage: UNK, QW FOR 6 DOSES
     Route: 065
  3. PLASMA, FRESH FROZEN [Concomitant]
     Active Substance: HUMAN PLASMA
     Indication: ATYPICAL HAEMOLYTIC URAEMIC SYNDROME
     Dosage: UNK, UNK
     Route: 065
  4. LISINOPRIL. [Concomitant]
     Active Substance: LISINOPRIL
     Indication: PROTEINURIA
     Dosage: UNK, UNK
     Route: 065
  5. PENICILLIN                         /00000901/ [Concomitant]
     Active Substance: PENICILLIN G
     Indication: PROPHYLAXIS
     Dosage: UNK, UNK
     Route: 065
  6. LISINOPRIL. [Concomitant]
     Active Substance: LISINOPRIL
     Indication: HYPERTENSION

REACTIONS (16)
  - Anuria [Unknown]
  - Chronic kidney disease [Not Recovered/Not Resolved]
  - Hypertension [Not Recovered/Not Resolved]
  - Platelet count decreased [Recovered/Resolved]
  - Proteinuria [Not Recovered/Not Resolved]
  - White blood cell count increased [Unknown]
  - Congestive cardiomyopathy [Unknown]
  - Dialysis [Unknown]
  - Dysphagia [Not Recovered/Not Resolved]
  - Disease recurrence [Recovered/Resolved]
  - Viral infection [Unknown]
  - Pyrexia [Unknown]
  - Seizure [Unknown]
  - Cardiac failure [Recovered/Resolved]
  - Atypical haemolytic uraemic syndrome [Unknown]
  - Blood lactate dehydrogenase increased [Unknown]
